FAERS Safety Report 4279061-9 (Version None)
Quarter: 2004Q1

REPORT INFORMATION
  Report Type: 
  Country: None (occurrence: None)
  Receive Date: 20040122
  Receipt Date: 20040113
  Transmission Date: 20041129
  Serious: Yes (Hospitalization)
  Sender: FDA-Public Use
  Company Number: OXYA20040001

PATIENT
  Age: 79 Year
  Sex: Male
  Weight: 82 kg

DRUGS (5)
  1. OXYCODONE AND ACETAMINOPHEN [Suspect]
     Indication: PAIN
     Dosage: PO
     Route: 048
  2. KAYEXALATE [Suspect]
     Indication: HYPERKALAEMIA
     Dosage: 60 GRAMS TWICE PO
     Route: 048
  3. ALBUTEROL [Concomitant]
  4. IPRATROPIUM BROMIDE [Concomitant]
  5. TRIAMCINOLONE [Concomitant]

REACTIONS (17)
  - ABDOMINAL DISTENSION [None]
  - ATHEROSCLEROSIS [None]
  - ATRIAL FIBRILLATION [None]
  - CHEST PAIN [None]
  - COLITIS ISCHAEMIC [None]
  - CONDITION AGGRAVATED [None]
  - FAECAL OCCULT BLOOD POSITIVE [None]
  - FEMORAL ARTERY OCCLUSION [None]
  - ILEUS [None]
  - INTESTINAL HYPOMOTILITY [None]
  - LARGE INTESTINE PERFORATION [None]
  - NAUSEA [None]
  - NECROSIS [None]
  - PERIPHERAL ISCHAEMIA [None]
  - SEPSIS [None]
  - VASCULAR ACCESS COMPLICATION [None]
  - VOMITING [None]
